FAERS Safety Report 8383662-6 (Version None)
Quarter: 2012Q2

REPORT INFORMATION
  Report Type: 
  Country: None (occurrence: None)
  Receive Date: 20120524
  Receipt Date: 20120522
  Transmission Date: 20120825
  Serious: Yes (Other)
  Sender: FDA-Public Use
  Company Number: US-FRI-1000030699

PATIENT
  Age: 80 Year
  Sex: Male

DRUGS (10)
  1. DALIRESP [Suspect]
     Indication: CHRONIC OBSTRUCTIVE PULMONARY DISEASE
     Dosage: 500 MCG
     Route: 048
     Dates: start: 20120515, end: 20120522
  2. PROVENTIL [Concomitant]
     Indication: CHRONIC OBSTRUCTIVE PULMONARY DISEASE
  3. HYDROCHLOROTHIAZIDE [Concomitant]
     Indication: JOINT SWELLING
     Dosage: 12.5 MG
  4. AZELASTINE HCL [Concomitant]
  5. TRIAMTERENE [Concomitant]
     Indication: JOINT SWELLING
     Dosage: 37.5 MG
  6. DOXAZOSIN MESYLATE [Concomitant]
     Dosage: 8 MG
  7. SPIRIVA [Concomitant]
     Indication: CHRONIC OBSTRUCTIVE PULMONARY DISEASE
  8. ADVAIR DISKUS 100/50 [Concomitant]
     Indication: CHRONIC OBSTRUCTIVE PULMONARY DISEASE
  9. ENABLEX [Concomitant]
     Indication: POLLAKIURIA
     Dosage: 7.5 MG
  10. SINGULAIR [Concomitant]
     Dosage: 10 MG

REACTIONS (1)
  - BLOOD URINE PRESENT [None]
